FAERS Safety Report 16628819 (Version 1)
Quarter: 2019Q3

REPORT INFORMATION
  Report Type: Spontaneous
  Country: BR (occurrence: BR)
  Receive Date: 20190725
  Receipt Date: 20190725
  Transmission Date: 20191004
  Serious: Yes (Death, Other)
  Sender: FDA-Public Use
  Company Number: BR-ROCHE-2361130

PATIENT
  Age: 57 Year
  Sex: Male
  Weight: 94 kg

DRUGS (1)
  1. ACTILYSE [Suspect]
     Active Substance: ALTEPLASE
     Indication: CEREBROVASCULAR ACCIDENT
     Dosage: 8ML IN BOLUS + 74ML IN INFUSION IN 1H
     Route: 065
     Dates: start: 20190623, end: 20190623

REACTIONS (5)
  - Intracranial pressure increased [Fatal]
  - Nausea [Unknown]
  - Ischaemia [Unknown]
  - Vomiting [Unknown]
  - Seizure [Unknown]

NARRATIVE: CASE EVENT DATE: 20190623
